FAERS Safety Report 21271450 (Version 3)
Quarter: 2022Q3

REPORT INFORMATION
  Report Type: Spontaneous
  Country: BR (occurrence: BR)
  Receive Date: 20220830
  Receipt Date: 20220915
  Transmission Date: 20221026
  Serious: Yes (Life-Threatening)
  Sender: FDA-Public Use
  Company Number: BR-TAKEDA-2022TUS059815

PATIENT
  Sex: Female
  Weight: 85 kg

DRUGS (1)
  1. DEXILANT [Suspect]
     Active Substance: DEXLANSOPRAZOLE
     Indication: Oesophagitis
     Dosage: 60 MILLIGRAM, QD
     Route: 065
     Dates: start: 20220721

REACTIONS (9)
  - Pharyngeal swelling [Unknown]
  - Abdominal pain upper [Unknown]
  - Wheezing [Unknown]
  - Fatigue [Unknown]
  - Malaise [Unknown]
  - Cough [Unknown]
  - Chest pain [Unknown]
  - Dyspnoea [Unknown]
  - Diarrhoea [Unknown]
